FAERS Safety Report 7164943-0 (Version None)
Quarter: 2010Q4

REPORT INFORMATION
  Report Type: 
  Country: None (occurrence: None)
  Receive Date: 20101215
  Receipt Date: 20091215
  Transmission Date: 20110411
  Serious: No
  Sender: FDA-Public Use
  Company Number: US-AMGEN-KDL380654

PATIENT

DRUGS (3)
  1. ENBREL [Suspect]
     Indication: RHEUMATOID ARTHRITIS
     Dosage: 50 MG, QWK
     Route: 058
  2. METHOTREXATE [Concomitant]
     Dosage: 20 MG, QWK
     Route: 048
  3. HYDROXYCHLOROQUINE SULFATE [Concomitant]
     Dosage: 200 MG, BID
     Route: 048

REACTIONS (9)
  - ARTHRALGIA [None]
  - INJECTION SITE HAEMATOMA [None]
  - INJECTION SITE NODULE [None]
  - INJECTION SITE PAIN [None]
  - INJECTION SITE URTICARIA [None]
  - INSOMNIA [None]
  - URINARY TRACT INFECTION [None]
  - VULVOVAGINAL BURNING SENSATION [None]
  - WEIGHT INCREASED [None]
